FAERS Safety Report 10381317 (Version 1)
Quarter: 2014Q3

REPORT INFORMATION
  Report Type: Spontaneous
  Country: US (occurrence: US)
  Receive Date: 20140813
  Receipt Date: 20140813
  Transmission Date: 20150326
  Serious: Yes (Hospitalization)
  Sender: FDA-Public Use
  Company Number: US-ASTRAZENECA-2014SE57702

PATIENT
  Sex: Male

DRUGS (3)
  1. BRILINTA [Suspect]
     Active Substance: TICAGRELOR
     Indication: ACUTE MYOCARDIAL INFARCTION
     Route: 048
     Dates: start: 20140722, end: 201407
  2. BRILINTA [Suspect]
     Active Substance: TICAGRELOR
     Indication: ACUTE MYOCARDIAL INFARCTION
     Route: 048
     Dates: start: 201407, end: 201408
  3. BABY ASPIRIN [Concomitant]
     Active Substance: ASPIRIN
     Dosage: ONES A DAY

REACTIONS (2)
  - Thrombosis in device [Unknown]
  - Off label use [Unknown]

NARRATIVE: CASE EVENT DATE: 201407
